FAERS Safety Report 8231934 (Version 2)
Quarter: 2012Q4

REPORT INFORMATION
  Report Type: 
  Country: US (occurrence: US)
  Receive Date: 20111106
  Receipt Date: 20121023
  Transmission Date: 20130627
  Serious: No
  Sender: FDA-Public Use
  Company Number: US-AMGEN-USASP2011046516

PATIENT
  Age: 35 Year
  Sex: Male
  Weight: 84.81 kg

DRUGS (2)
  1. ENBREL [Suspect]
     Indication: PSORIATIC ARTHROPATHY
     Dosage: 50 mg, q2wk
     Dates: start: 2001, end: 201006
  2. ENBREL [Suspect]
     Indication: PSORIASIS

REACTIONS (1)
  - Tuberculin test positive [Not Recovered/Not Resolved]
